FAERS Safety Report 9928856 (Version 1)
Quarter: 2014Q1

REPORT INFORMATION
  Report Type: Spontaneous
  Country: GB (occurrence: GB)
  Receive Date: 20140227
  Receipt Date: 20140227
  Transmission Date: 20141002
  Serious: Yes (Other)
  Sender: FDA-Public Use
  Company Number: GB-TEVA-464911ISR

PATIENT
  Sex: Female

DRUGS (2)
  1. METFORMIN TEVA [Suspect]
     Indication: PRODUCT USED FOR UNKNOWN INDICATION
     Route: 065
  2. METFORMIN TEVA [Suspect]
     Route: 065
     Dates: start: 201402

REACTIONS (2)
  - Blood glucose decreased [Not Recovered/Not Resolved]
  - Syncope [Unknown]
